FAERS Safety Report 11092710 (Version 1)
Quarter: 2015Q2

REPORT INFORMATION
  Report Type: Spontaneous
  Country: CN (occurrence: CN)
  Receive Date: 20150506
  Receipt Date: 20150506
  Transmission Date: 20150821
  Serious: Yes (Other)
  Sender: FDA-Public Use
  Company Number: CN-JNJFOC-20150419326

PATIENT

DRUGS (6)
  1. GEMCITABINE [Suspect]
     Active Substance: GEMCITABINE\GEMCITABINE HYDROCHLORIDE
     Indication: T-CELL LYMPHOMA
     Dosage: GROUP1-800 MG/M2 GROUP 2-1000 MG/M2 ON DAYS 1 AND 8
     Route: 065
  2. DOXORUBICIN HYDROCHLORIDE. [Suspect]
     Active Substance: DOXORUBICIN HYDROCHLORIDE
     Indication: T-CELL LYMPHOMA
     Dosage: ON DAY 1
     Route: 042
  3. DEXAMETHASONE. [Concomitant]
     Active Substance: DEXAMETHASONE
     Indication: PROPHYLAXIS
     Dosage: ADMINISTERED ROUTINELY 30 MINUTES BEFORE EVERY CYCLE
     Route: 065
  4. RAMOSETRON [Concomitant]
     Active Substance: RAMOSETRON HYDROCHLORIDE
     Indication: PROPHYLAXIS
     Dosage: ADMINISTERED ROUTINELY 30 MINUTES BEFORE EVERY CYCLE
     Route: 065
  5. GRANISETRON [Concomitant]
     Active Substance: GRANISETRON
     Indication: PROPHYLAXIS
     Dosage: ADMINISTERED ROUTINELY 30 MINUTES BEFORE EVERY CYCLE
     Route: 065
  6. NAVELBINE [Suspect]
     Active Substance: VINORELBINE TARTRATE
     Indication: T-CELL LYMPHOMA
     Dosage: ON DAYS 1 AND 8
     Route: 065

REACTIONS (14)
  - Leukopenia [Unknown]
  - Hepatic function abnormal [Unknown]
  - Anaemia [Unknown]
  - Decreased appetite [Unknown]
  - Thrombocytopenia [Unknown]
  - Nausea [Unknown]
  - Constipation [Unknown]
  - Renal impairment [Unknown]
  - Vomiting [Unknown]
  - Fatigue [Unknown]
  - Pyrexia [Unknown]
  - Lung infection [Recovered/Resolved]
  - Neutropenia [Unknown]
  - Headache [Unknown]
